FAERS Safety Report 9216774 (Version 2)
Quarter: 2013Q3

REPORT INFORMATION
  Report Type: Report from Study
  Country: US (occurrence: US)
  Receive Date: 20130408
  Receipt Date: 20130722
  Transmission Date: 20140515
  Serious: Yes (Hospitalization)
  Sender: FDA-Public Use
  Company Number: US-BAYER-2013-041206

PATIENT
  Age: 55 Year
  Sex: Male
  Weight: 104.31 kg

DRUGS (7)
  1. NEXAVAR [Suspect]
     Indication: RENAL CANCER
     Dosage: 2X200 MG
     Route: 048
     Dates: start: 20130221
  2. NEXAVAR [Suspect]
     Indication: RENAL CANCER
     Dosage: 400 MG, BID
     Dates: start: 20130227, end: 20130228
  3. GLYBURIDE/METFORMIN [Concomitant]
     Indication: DIABETES MELLITUS
     Dosage: 2 DF, BID
  4. DILTIAZEM [Concomitant]
     Indication: HYPERTENSION
     Dosage: 1 DF, QD
  5. CLONIDINE HYDROCHLORIDE [Concomitant]
     Indication: HYPERTENSION
     Dosage: 1 DF, BID
  6. ACARBOSE [Concomitant]
     Indication: DIABETES MELLITUS
     Dosage: 1 DF, TID
  7. FOLIC ACID [Concomitant]
     Dosage: 1 DF, QD

REACTIONS (3)
  - Pharyngeal oedema [None]
  - Swollen tongue [Not Recovered/Not Resolved]
  - Hypoaesthesia [Not Recovered/Not Resolved]
